FAERS Safety Report 4691038-8 (Version None)
Quarter: 2005Q2

REPORT INFORMATION
  Report Type: 
  Country: None (occurrence: None)
  Receive Date: 20050615
  Receipt Date: 20050531
  Transmission Date: 20051028
  Serious: Yes (Other)
  Sender: FDA-Public Use
  Company Number: 2005AC00803

PATIENT
  Age: 14 Year
  Sex: Male

DRUGS (7)
  1. LIDOCAINE [Suspect]
     Indication: ANAESTHESIA
  2. PROPOFOL [Suspect]
     Indication: ANAESTHESIA
  3. FENTANYL [Suspect]
     Indication: ANAESTHESIA
  4. DESFLURANE [Concomitant]
     Indication: ANAESTHESIA
  5. SODIUM CHLORIDE [Concomitant]
  6. OPTIRAY 160 [Concomitant]
     Dosage: TOTAL ADMINISTERED DURING PROCEDURE
  7. ROCURONIUM [Concomitant]
     Indication: HYPOTONIA

REACTIONS (5)
  - BLOOD CALCIUM DECREASED [None]
  - BLOOD CHLORIDE DECREASED [None]
  - BLOOD GLUCOSE INCREASED [None]
  - HAEMATOCRIT DECREASED [None]
  - HYPERKALAEMIA [None]
